FAERS Safety Report 6467851-3 (Version None)
Quarter: 2009Q4

REPORT INFORMATION
  Report Type: 
  Country: None (occurrence: None)
  Receive Date: 20091202
  Receipt Date: 20091124
  Transmission Date: 20100525
  Serious: Yes (Hospitalization)
  Sender: FDA-Public Use
  Company Number: IN-SANOFI-AVENTIS-200917800GDDC

PATIENT
  Age: 67 Year
  Sex: Male

DRUGS (6)
  1. DOCETAXEL [Suspect]
     Route: 042
     Dates: start: 20090701, end: 20090701
  2. BLINDED THERAPY [Suspect]
     Route: 048
     Dates: start: 20090701, end: 20090706
  3. PREDNISONE [Suspect]
     Route: 048
  4. DEXAMETHASONE TAB [Suspect]
     Indication: PREMEDICATION
     Route: 048
  5. PROPRANOLOL [Concomitant]
     Dates: start: 20090701
  6. MULTI-VITAMINS [Concomitant]
     Dates: start: 20090701

REACTIONS (7)
  - ABDOMINAL PAIN UPPER [None]
  - CEREBRAL INFARCTION [None]
  - CHEST PAIN [None]
  - FEBRILE NEUTROPENIA [None]
  - NEUTROPHIL COUNT INCREASED [None]
  - OROPHARYNGEAL PAIN [None]
  - WHITE BLOOD CELL COUNT INCREASED [None]
